FAERS Safety Report 7507516-X (Version None)
Quarter: 2011Q2

REPORT INFORMATION
  Report Type: 
  Country: None (occurrence: None)
  Receive Date: 20110526
  Receipt Date: 20100929
  Transmission Date: 20111010
  Serious: No
  Sender: FDA-Public Use
  Company Number: US-MYLANLABS-2010S1017866

PATIENT
  Age: 71 Year
  Sex: Female
  Weight: 83.92 kg

DRUGS (2)
  1. OMEPRAZOLE [Concomitant]
     Indication: GASTRIC ULCER
     Dosage: USING OMEPRZOLE CAPSULE, 20MG
  2. ZOLPIDEM TARTRATE [Suspect]
     Indication: INSOMNIA
     Route: 048
     Dates: start: 20100901

REACTIONS (2)
  - INSOMNIA [None]
  - DRUG INEFFECTIVE [None]
